FAERS Safety Report 23764130 (Version 2)
Quarter: 2024Q2

REPORT INFORMATION
  Report Type: Report from Study
  Country: US (occurrence: US)
  Receive Date: 20240419
  Receipt Date: 20240620
  Transmission Date: 20240715
  Serious: Yes (Hospitalization)
  Sender: FDA-Public Use
  Company Number: US-ABBVIE-5724302

PATIENT
  Age: 42 Year
  Sex: Male
  Weight: 77 kg

DRUGS (4)
  1. SKYRIZI [Suspect]
     Active Substance: RISANKIZUMAB-RZAA
     Indication: Crohn^s disease
     Dosage: FORM STRENGTH: 2.4 MILLILITRE(S), ?WEEK 12
     Route: 058
     Dates: start: 20240407
  2. SKYRIZI [Suspect]
     Active Substance: RISANKIZUMAB-RZAA
     Indication: Crohn^s disease
     Dosage: FORM STRENGTH: 600 MILLIGRAM, ?FREQUENCY TEXT: WEEK 0
     Route: 042
     Dates: start: 202401, end: 202401
  3. SKYRIZI [Suspect]
     Active Substance: RISANKIZUMAB-RZAA
     Indication: Crohn^s disease
     Dosage: FORM STRENGTH: 600 MILLIGRAM, ?FREQUENCY TEXT: WEEK 8
     Route: 042
     Dates: start: 202403, end: 202403
  4. SKYRIZI [Suspect]
     Active Substance: RISANKIZUMAB-RZAA
     Indication: Crohn^s disease
     Dosage: FORM STRENGTH: 600 MILLIGRAM, ?FREQUENCY TEXT: WEEK 4
     Route: 042
     Dates: start: 202402, end: 202402

REACTIONS (1)
  - Post procedural haemorrhage [Recovered/Resolved]

NARRATIVE: CASE EVENT DATE: 20240404
